FAERS Safety Report 10813326 (Version 1)
Quarter: 2015Q1

REPORT INFORMATION
  Report Type: Report from Study
  Country: US (occurrence: US)
  Receive Date: 20150218
  Receipt Date: 20150218
  Transmission Date: 20150721
  Serious: Yes (Hospitalization)
  Sender: FDA-Public Use
  Company Number: US-ABBVIE-14K-163-1274183-00

PATIENT
  Sex: Male
  Weight: 86.26 kg

DRUGS (9)
  1. HUMIRA [Suspect]
     Active Substance: ADALIMUMAB
     Route: 058
     Dates: start: 2012, end: 2013
  2. HUMIRA [Suspect]
     Active Substance: ADALIMUMAB
     Indication: CROHN^S DISEASE
     Dosage: LOADING DOSE
     Route: 058
     Dates: start: 2011, end: 2011
  3. HUMIRA [Suspect]
     Active Substance: ADALIMUMAB
     Dates: start: 201306, end: 201308
  4. HUMIRA [Suspect]
     Active Substance: ADALIMUMAB
     Dosage: LOADING DOSE
     Route: 058
     Dates: start: 20140809, end: 20140809
  5. HUMIRA [Suspect]
     Active Substance: ADALIMUMAB
     Route: 058
     Dates: start: 2011, end: 2012
  6. HUMIRA [Suspect]
     Active Substance: ADALIMUMAB
     Dosage: LOADING DOSE
     Route: 058
     Dates: start: 2012, end: 2012
  7. PRILOSEC [Concomitant]
     Active Substance: OMEPRAZOLE MAGNESIUM
     Indication: DYSPEPSIA
     Dosage: EVERY MORNING
  8. HUMIRA [Suspect]
     Active Substance: ADALIMUMAB
     Dosage: LOADING DOSE
     Route: 058
     Dates: start: 2011, end: 2011
  9. HUMIRA [Suspect]
     Active Substance: ADALIMUMAB
     Dosage: LOADING DOSE
     Route: 058
     Dates: start: 2012, end: 2012

REACTIONS (12)
  - Crohn^s disease [Recovered/Resolved]
  - Dry mouth [Recovering/Resolving]
  - Depression [Recovering/Resolving]
  - Crohn^s disease [Unknown]
  - Nausea [Unknown]
  - Unevaluable event [Unknown]
  - Nasal congestion [Recovering/Resolving]
  - Pharyngeal disorder [Recovering/Resolving]
  - Fatigue [Recovering/Resolving]
  - Crohn^s disease [Recovered/Resolved]
  - Arthralgia [Recovering/Resolving]
  - Throat irritation [Recovering/Resolving]

NARRATIVE: CASE EVENT DATE: 2012
